FAERS Safety Report 6653194-1 (Version None)
Quarter: 2010Q1

REPORT INFORMATION
  Report Type: 
  Country: None (occurrence: None)
  Receive Date: 20100317
  Receipt Date: 20091201
  Transmission Date: 20100710
  Serious: Yes (Disabling, Other)
  Sender: FDA-Public Use
  Company Number: DSA_41870_2009

PATIENT
  Sex: Female

DRUGS (2)
  1. XENAZINE [Suspect]
     Indication: TORTICOLLIS
     Dosage: 25 MG TID ORAL, DF ORAL
     Route: 048
     Dates: start: 20090601, end: 20090101
  2. XENAZINE [Suspect]
     Indication: TORTICOLLIS
     Dosage: 25 MG TID ORAL, DF ORAL
     Route: 048
     Dates: start: 20090101, end: 20090928

REACTIONS (2)
  - DEPRESSION [None]
  - SUICIDAL IDEATION [None]
